FAERS Safety Report 4457449-0 (Version None)
Quarter: 2004Q3

REPORT INFORMATION
  Report Type: 
  Country: None (occurrence: None)
  Receive Date: 20040922
  Receipt Date: 20040914
  Transmission Date: 20050211
  Serious: No
  Sender: FDA-Public Use
  Company Number: S04-USA-04735-01

PATIENT
  Age: 61 Year
  Sex: Female

DRUGS (3)
  1. THYROID TAB [Suspect]
     Indication: HYPOTHYROIDISM
     Dosage: 2 GRAIN QD PO
     Route: 048
     Dates: start: 20040201, end: 20040701
  2. THYROID TAB [Concomitant]
     Indication: HYPOTHYROIDISM
     Dosage: 1.5 GRAIN QD PO
     Route: 048
     Dates: start: 20040701
  3. THYROID TAB [Suspect]
     Indication: HYPOTHYROIDISM
     Dosage: 1 GRAIN QD PO

REACTIONS (5)
  - CARDIAC FLUTTER [None]
  - DIZZINESS [None]
  - EAR CONGESTION [None]
  - FATIGUE [None]
  - HYPERSENSITIVITY [None]
